FAERS Safety Report 7982633-9 (Version None)
Quarter: 2011Q4

REPORT INFORMATION
  Report Type: 
  Country: None (occurrence: None)
  Receive Date: 20111215
  Receipt Date: 20111212
  Transmission Date: 20120403
  Serious: Yes (Other)
  Sender: FDA-Public Use
  Company Number: DE-GLAXOSMITHKLINE-D0073109A

PATIENT
  Age: 52 Year

DRUGS (2)
  1. STALEVO 100 [Suspect]
     Route: 065
  2. REQUIP [Suspect]
     Indication: PARKINSON'S DISEASE
     Dosage: 16MG IN THE MORNING
     Route: 048
     Dates: start: 20090101

REACTIONS (2)
  - FATIGUE [None]
  - DEPRESSED LEVEL OF CONSCIOUSNESS [None]
